FAERS Safety Report 14931682 (Version 5)
Quarter: 2022Q1

REPORT INFORMATION
  Report Type: Report from Study
  Country: FR (occurrence: FR)
  Receive Date: 20180524
  Receipt Date: 20220130
  Transmission Date: 20220424
  Serious: Yes (Death, Hospitalization, Other)
  Sender: FDA-Public Use
  Company Number: FR-JAZZ-2018-FR-008150

PATIENT

DRUGS (6)
  1. DEFITELIO [Suspect]
     Active Substance: DEFIBROTIDE SODIUM
     Indication: Prophylaxis
     Dosage: 23.5 MG/KG, QD
     Route: 042
     Dates: start: 20170207, end: 20170228
  2. DEFITELIO [Suspect]
     Active Substance: DEFIBROTIDE SODIUM
     Indication: Venoocclusive disease
  3. LINEZOLID [Concomitant]
     Active Substance: LINEZOLID
     Indication: Hyperthermia
     Dosage: 600 MG, BID
     Route: 042
     Dates: start: 20170217, end: 201703
  4. FLUCONAZOLE [Concomitant]
     Active Substance: FLUCONAZOLE
     Indication: Hyperthermia
     Dosage: 200 MG, QD
     Route: 042
     Dates: start: 20170207, end: 201703
  5. CEFEPIME HYDROCHLORIDE [Concomitant]
     Active Substance: CEFEPIME HYDROCHLORIDE
     Indication: Hyperthermia
     Dosage: 2 G, BID
     Route: 042
     Dates: start: 20170209, end: 201703
  6. ESOMEPRAZOLE MAGNESIUM [Concomitant]
     Active Substance: ESOMEPRAZOLE MAGNESIUM
     Indication: Prophylaxis
     Dosage: 20 MG, QD
     Route: 048
     Dates: start: 20170207, end: 201703

REACTIONS (8)
  - Infection [Fatal]
  - Septic shock [Fatal]
  - Embolism [Unknown]
  - Acute kidney injury [Unknown]
  - Systemic candida [Recovered/Resolved with Sequelae]
  - Hypovolaemia [Recovered/Resolved with Sequelae]
  - Diarrhoea [Recovered/Resolved with Sequelae]
  - Off label use [Recovered/Resolved with Sequelae]

NARRATIVE: CASE EVENT DATE: 20170218
